FAERS Safety Report 4593801-0 (Version None)
Quarter: 2005Q1

REPORT INFORMATION
  Report Type: 
  Country: None (occurrence: None)
  Receive Date: 20050301
  Receipt Date: 20031205
  Transmission Date: 20050727
  Serious: Yes (Hospitalization)
  Sender: FDA-Public Use
  Company Number: DE-BRISTOL-MYERS SQUIBB COMPANY-12452827

PATIENT
  Age: 50 Year
  Sex: Male

DRUGS (5)
  1. KARVEA TABS 300 MG [Suspect]
     Indication: HYPERTENSION
     Dosage: STOPPED 28-MAR-2003; BEGAN COAPROVEL JUN-2003 - 12-AUG-2003; 13-AUG-03 RESTARTED KARVEA.
     Route: 048
     Dates: start: 20030301, end: 20030828
  2. COAPROVEL TABS [Interacting]
     Indication: HYPERTENSION
     Route: 048
     Dates: start: 20030601, end: 20030812
  3. LEPONEX [Interacting]
     Indication: SCHIZOPHRENIA
     Dosage: DOSE VALUE: 350-500 MG. DURATION OF THERAPY: FOR MORE THAN 10 YEARS.
  4. DIPIPERON [Concomitant]
     Indication: RESTLESSNESS
     Dosage: DOSE VALUE: 80-160 MG
     Route: 048
     Dates: start: 20030601
  5. ALLOPURINOL [Concomitant]
     Indication: HYPERURICAEMIA
     Route: 048
     Dates: start: 20030301

REACTIONS (3)
  - DRUG INTERACTION [None]
  - DRUG LEVEL DECREASED [None]
  - PSYCHOTIC DISORDER [None]
